FAERS Safety Report 4851711-5 (Version None)
Quarter: 2005Q4

REPORT INFORMATION
  Report Type: 
  Country: None (occurrence: None)
  Receive Date: 20051209
  Receipt Date: 20051206
  Transmission Date: 20060501
  Serious: Yes (Disabling)
  Sender: FDA-Public Use
  Company Number: EM2005-0490

PATIENT
  Age: 57 Year
  Sex: Male

DRUGS (3)
  1. PROLEUKIN [Suspect]
     Indication: MALIGNANT MELANOMA
     Dosage: 4500 UNITS, SUBCUTAN.
     Route: 058
     Dates: start: 20040422, end: 20050729
  2. CISPLATIN [Suspect]
     Indication: MALIGNANT MELANOMA
     Dosage: 130 MG, IV
     Route: 042
     Dates: start: 20040422, end: 20050729
  3. ROFERON-A (INTERFERONA ALFA) [Suspect]
     Indication: MALIGNANT MELANOMA
     Dosage: 6 KIU, SUBCUTAN.
     Route: 058
     Dates: start: 20040422, end: 20040729

REACTIONS (2)
  - DEAFNESS NEUROSENSORY [None]
  - HYPOACUSIS [None]
